FAERS Safety Report 9636307 (Version 1)
Quarter: 2013Q4

REPORT INFORMATION
  Report Type: Spontaneous
  Country: US (occurrence: US)
  Receive Date: 20131021
  Receipt Date: 20131021
  Transmission Date: 20140711
  Serious: Yes (Other)
  Sender: FDA-Public Use
  Company Number: US-SA-2013SA103675

PATIENT
  Age: 78 Year
  Sex: Male

DRUGS (3)
  1. LANTUS SOLOSTAR [Suspect]
     Route: 058
     Dates: start: 201308
  2. LANTUS SOLOSTAR [Suspect]
     Dosage: DOSE:26 UNIT(S)
     Route: 058
  3. SOLOSTAR [Concomitant]

REACTIONS (4)
  - Hepatic cancer [Unknown]
  - Pancreatic carcinoma [Unknown]
  - Blood disorder [Unknown]
  - Blood glucose increased [Unknown]
